FAERS Safety Report 6782873-0 (Version None)
Quarter: 2010Q2

REPORT INFORMATION
  Report Type: 
  Country: None (occurrence: None)
  Receive Date: 20100617
  Receipt Date: 20100602
  Transmission Date: 20101027
  Serious: Yes (Hospitalization)
  Sender: FDA-Public Use
  Company Number: 2010EN000172

PATIENT
  Age: 16 Year
  Sex: Male
  Weight: 103 kg

DRUGS (8)
  1. ONCASPAR [Suspect]
     Indication: ACUTE LYMPHOCYTIC LEUKAEMIA
     Dosage: 6050 MG;X1;IV
     Route: 042
     Dates: start: 20100510, end: 20100510
  2. DAUNORUBICIN HCL [Suspect]
     Indication: ACUTE LYMPHOCYTIC LEUKAEMIA
     Dosage: 240 MG;IV
     Route: 042
     Dates: start: 20100507, end: 20100528
  3. VINCRISTINE [Suspect]
     Indication: ACUTE LYMPHOCYTIC LEUKAEMIA
     Dosage: 8 MG;IV
     Route: 042
     Dates: start: 20100507, end: 20100528
  4. BACTRIM [Suspect]
     Indication: DRUG USE FOR UNKNOWN INDICATION
  5. PREVACID [Suspect]
     Indication: DRUG USE FOR UNKNOWN INDICATION
  6. CYTRABINE [Concomitant]
  7. METHOTREXATE [Concomitant]
  8. PREDNISONE [Concomitant]

REACTIONS (11)
  - ALANINE AMINOTRANSFERASE INCREASED [None]
  - ASPARTATE AMINOTRANSFERASE INCREASED [None]
  - BLOOD FIBRINOGEN DECREASED [None]
  - GALLBLADDER DISORDER [None]
  - GAMMA-GLUTAMYLTRANSFERASE INCREASED [None]
  - HEPATIC STEATOSIS [None]
  - HYPERBILIRUBINAEMIA [None]
  - HYPERCHOLESTEROLAEMIA [None]
  - HYPERGLYCAEMIA [None]
  - INTERNATIONAL NORMALISED RATIO INCREASED [None]
  - OCULAR ICTERUS [None]
